FAERS Safety Report 14767593 (Version 1)
Quarter: 2018Q2

REPORT INFORMATION
  Report Type: Report from Study
  Country: GB (occurrence: GB)
  Receive Date: 20180417
  Receipt Date: 20180417
  Transmission Date: 20180711
  Serious: Yes (Other)
  Sender: FDA-Public Use
  Company Number: GB-ROCHE-2079369

PATIENT
  Sex: Female

DRUGS (2)
  1. ROACTEMRA [Suspect]
     Active Substance: TOCILIZUMAB
     Indication: RHEUMATOID ARTHRITIS
     Dosage: LAST DOSE : 19/FEB/2018
     Route: 058
     Dates: start: 20171222, end: 20180220
  2. LOSARTAN. [Concomitant]
     Active Substance: LOSARTAN
     Indication: HYPERTENSION
     Route: 048

REACTIONS (3)
  - Nephrolithiasis [Unknown]
  - Back pain [Recovered/Resolved with Sequelae]
  - Hydronephrosis [Unknown]

NARRATIVE: CASE EVENT DATE: 20180212
